FAERS Safety Report 9370112 (Version 2)
Quarter: 2013Q3

REPORT INFORMATION
  Report Type: Spontaneous
  Country: BR (occurrence: BR)
  Receive Date: 20130626
  Receipt Date: 20130725
  Transmission Date: 20140515
  Serious: Yes (Other)
  Sender: FDA-Public Use
  Company Number: PHHY2013BR064362

PATIENT
  Sex: Female
  Weight: 65 kg

DRUGS (3)
  1. BUFFERIN [Suspect]
     Indication: CEREBROVASCULAR ACCIDENT
     Dosage: 1 DF, UNK
     Route: 048
  2. ASPIRINA PREVENT [Suspect]
     Dosage: 1 DF, DAILY
     Route: 048
  3. MICARDIS [Concomitant]
     Indication: HYPERTENSION
     Dosage: 1 DF, UNK
     Route: 048

REACTIONS (3)
  - Carotid arteriosclerosis [Not Recovered/Not Resolved]
  - Anal haemorrhage [Recovered/Resolved]
  - Drug hypersensitivity [Not Recovered/Not Resolved]
